FAERS Safety Report 7114096-X (Version None)
Quarter: 2010Q4

REPORT INFORMATION
  Report Type: 
  Country: None (occurrence: None)
  Receive Date: 20101119
  Receipt Date: 20101111
  Transmission Date: 20110411
  Serious: Yes (Other)
  Sender: FDA-Public Use
  Company Number: BR-SANOFI-AVENTIS-2010SA068903

PATIENT
  Age: 50 Year
  Sex: Female
  Weight: 59 kg

DRUGS (19)
  1. LANTUS SOLOSTAR [Suspect]
     Indication: TYPE 2 DIABETES MELLITUS
     Route: 058
     Dates: start: 20050101, end: 20060101
  2. LANTUS SOLOSTAR [Suspect]
     Route: 058
     Dates: start: 20090101
  3. SOLOSTAR [Suspect]
  4. BACTRIM [Concomitant]
     Indication: PROPHYLAXIS
     Route: 048
  5. PREDNISONE [Concomitant]
     Route: 048
  6. CICLOSPORIN [Concomitant]
     Route: 048
  7. SYNTHROID [Concomitant]
     Indication: HYPOTHYROIDISM
     Route: 048
  8. ADALAT [Concomitant]
     Indication: BLOOD PRESSURE
     Route: 048
  9. PAMELOR [Concomitant]
     Indication: ANTIDEPRESSANT THERAPY
     Route: 048
  10. RIVOTRIL [Concomitant]
     Route: 048
  11. PANTOPRAZOLE [Concomitant]
     Indication: GASTRIC DISORDER
     Route: 048
  12. VITAMIN D [Concomitant]
     Route: 048
  13. CALCIUM CARBONATE [Concomitant]
     Route: 048
  14. MAGNESIUM CARBONATE [Concomitant]
     Route: 048
  15. ITRACONAZOLE [Concomitant]
     Indication: ANTIFUNGAL TREATMENT
  16. POLYACRYLIC ACID/SORBITOL [Concomitant]
     Route: 031
  17. PREDNISOLONE [Concomitant]
     Route: 031
  18. NOVOLIN 70/30 [Concomitant]
     Indication: TYPE 2 DIABETES MELLITUS
  19. CALCIFEROL [Concomitant]

REACTIONS (11)
  - BONE MARROW TRANSPLANT [None]
  - DIZZINESS [None]
  - DRY MOUTH [None]
  - HYPERGLYCAEMIA [None]
  - HYPERHIDROSIS [None]
  - HYPOGLYCAEMIA [None]
  - MUCOSAL INFLAMMATION [None]
  - ORAL PAIN [None]
  - OSTEONECROSIS [None]
  - STOMATITIS [None]
  - VISION BLURRED [None]
